FAERS Safety Report 11909823 (Version 1)
Quarter: 2016Q1

REPORT INFORMATION
  Report Type: Spontaneous
  Country: US (occurrence: None)
  Receive Date: 20160111
  Receipt Date: 20160111
  Transmission Date: 20160526
  Serious: No
  Sender: FDA-Public Use
  Company Number: None

PATIENT
  Age: 57 Year
  Sex: Female

DRUGS (7)
  1. EXEMESTATEN [Concomitant]
  2. FISH OIL [Concomitant]
     Active Substance: FISH OIL
  3. GLUCOSAMINE [Concomitant]
     Active Substance: GLUCOSAMINE
  4. FASLODEX [Concomitant]
     Active Substance: FULVESTRANT
  5. CAC [Concomitant]
  6. VIT. D3 [Concomitant]
  7. AFINITOR [Suspect]
     Active Substance: EVEROLIMUS
     Indication: NEOPLASM MALIGNANT
     Route: 048
     Dates: start: 20151224

REACTIONS (1)
  - Stomatitis [None]

NARRATIVE: CASE EVENT DATE: 201601
